FAERS Safety Report 10344302 (Version 1)
Quarter: 2014Q3

REPORT INFORMATION
  Report Type: Report from Study
  Country: US (occurrence: US)
  Receive Date: 20140728
  Receipt Date: 20140728
  Transmission Date: 20150326
  Serious: Yes (Hospitalization)
  Sender: FDA-Public Use
  Company Number: US-BIOGENIDEC-2014BI072676

PATIENT
  Age: 54 Year
  Sex: Female

DRUGS (2)
  1. AVONEX [Suspect]
     Active Substance: INTERFERON BETA-1A
     Indication: MULTIPLE SCLEROSIS
     Route: 030
     Dates: start: 20031006, end: 20080301
  2. AVONEX [Suspect]
     Active Substance: INTERFERON BETA-1A
     Indication: MULTIPLE SCLEROSIS
     Route: 030
     Dates: start: 20090428

REACTIONS (7)
  - Multiple sclerosis relapse [Not Recovered/Not Resolved]
  - Oesophagitis [Recovered/Resolved]
  - Weight decreased [Recovered/Resolved]
  - Gallbladder disorder [Recovered/Resolved]
  - Impaired gastric emptying [Recovered/Resolved]
  - Muscle atrophy [Recovered/Resolved]
  - Skeletal injury [Recovered/Resolved]

NARRATIVE: CASE EVENT DATE: 20130701
